FAERS Safety Report 5268332-5 (Version None)
Quarter: 2007Q1

REPORT INFORMATION
  Report Type: 
  Country: None (occurrence: None)
  Receive Date: 20070319
  Receipt Date: 20070308
  Transmission Date: 20070707
  Serious: Yes (Hospitalization, Other)
  Sender: FDA-Public Use
  Company Number: DK-AVENTIS-200711234EU

PATIENT
  Age: 84 Year
  Sex: Female

DRUGS (10)
  1. LASILIX                            /00032601/ [Suspect]
     Route: 048
     Dates: start: 20060801, end: 20060912
  2. LASILIX                            /00032601/ [Suspect]
     Route: 048
     Dates: start: 20060916
  3. INNOHEP                            /01707902/ [Suspect]
     Indication: DEEP VEIN THROMBOSIS
     Route: 058
     Dates: start: 20060614, end: 20060621
  4. INNOHEP                            /01707902/ [Suspect]
     Indication: PULMONARY EMBOLISM
     Route: 058
     Dates: start: 20060614, end: 20060621
  5. PREVISCAN                          /00789001/ [Suspect]
     Indication: DEEP VEIN THROMBOSIS
     Route: 048
     Dates: start: 20060615, end: 20060911
  6. PREVISCAN                          /00789001/ [Suspect]
     Route: 048
     Dates: start: 20060914
  7. ALLOPURINOL [Concomitant]
     Indication: HYPERURICAEMIA
     Route: 048
  8. NEXIUM [Concomitant]
     Route: 048
  9. ISOPTIN [Concomitant]
     Indication: HYPERTENSION
     Route: 048
     Dates: start: 20060624
  10. IMOVANE [Concomitant]
     Indication: INSOMNIA
     Dosage: DOSE: 0.5 TABLET
     Route: 048
     Dates: start: 20060627

REACTIONS (6)
  - ANAEMIA [None]
  - CONDITION AGGRAVATED [None]
  - DRUG INTERACTION [None]
  - HAEMATOMA [None]
  - INTERNATIONAL NORMALISED RATIO INCREASED [None]
  - RENAL FAILURE ACUTE [None]
